FAERS Safety Report 20225359 (Version 2)
Quarter: 2022Q1

REPORT INFORMATION
  Report Type: Report from Study
  Country: US (occurrence: US)
  Receive Date: 20211224
  Receipt Date: 20220105
  Transmission Date: 20220423
  Serious: Yes (Hospitalization, Other)
  Sender: FDA-Public Use
  Company Number: US-ABBVIE-21K-163-4209521-00

PATIENT
  Sex: Male
  Weight: 106.69 kg

DRUGS (5)
  1. VENCLEXTA [Suspect]
     Active Substance: VENETOCLAX
     Indication: Acute myeloid leukaemia
     Route: 048
     Dates: start: 20210405, end: 20210405
  2. VENCLEXTA [Suspect]
     Active Substance: VENETOCLAX
     Route: 048
     Dates: start: 20210406, end: 20210406
  3. VENCLEXTA [Suspect]
     Active Substance: VENETOCLAX
     Route: 048
     Dates: start: 202104, end: 2021
  4. VENCLEXTA [Suspect]
     Active Substance: VENETOCLAX
     Route: 048
     Dates: start: 2021, end: 20210519
  5. AZACITIDINE [Concomitant]
     Active Substance: AZACITIDINE
     Indication: Acute myeloid leukaemia
     Dosage: FOR 5 DAYS

REACTIONS (15)
  - Multiple organ dysfunction syndrome [Recovering/Resolving]
  - Atrial fibrillation [Recovered/Resolved]
  - Respiratory failure [Recovered/Resolved]
  - Hepatic failure [Recovered/Resolved]
  - Red blood cell count abnormal [Not Recovered/Not Resolved]
  - Septic shock [Recovered/Resolved]
  - Renal failure [Not Recovered/Not Resolved]
  - Asthenia [Recovered/Resolved]
  - Escherichia infection [Recovered/Resolved]
  - White blood cell count abnormal [Recovered/Resolved]
  - Sepsis [Recovering/Resolving]
  - Blast cell count increased [Recovered/Resolved]
  - Immunodeficiency [Recovered/Resolved]
  - Weight decreased [Unknown]
  - Bone marrow disorder [Not Recovered/Not Resolved]

NARRATIVE: CASE EVENT DATE: 20210101
